FAERS Safety Report 11423652 (Version 3)
Quarter: 2015Q3

REPORT INFORMATION
  Report Type: Spontaneous
  Country: DE (occurrence: DE)
  Receive Date: 20150827
  Receipt Date: 20150907
  Transmission Date: 20151125
  Serious: Yes (Life-Threatening, Hospitalization, Other)
  Sender: FDA-Public Use
  Company Number: DE-GILEAD-2015-0163694

PATIENT
  Age: 87 Year
  Sex: Female
  Weight: 78 kg

DRUGS (14)
  1. ZYDELIG [Suspect]
     Active Substance: IDELALISIB
     Indication: B-CELL SMALL LYMPHOCYTIC LYMPHOMA
     Dosage: 100 MG, BID
     Route: 048
     Dates: start: 2015, end: 201507
  2. MIFLONIDE [Concomitant]
     Active Substance: BUDESONIDE
  3. CANDESARTAN [Concomitant]
     Active Substance: CANDESARTAN
     Dosage: 80 MG, BID
     Route: 048
  4. CARVEDILOL. [Concomitant]
     Active Substance: CARVEDILOL
     Dosage: 6.25 MG, BID
     Route: 048
  5. TOREM                              /01036501/ [Concomitant]
     Active Substance: TORSEMIDE
     Dosage: 10 MG, UNK
     Dates: end: 201507
  6. EUPHYLONG [Concomitant]
     Active Substance: THEOPHYLLINE ANHYDROUS
     Dosage: 250 MG, UNK
     Route: 048
     Dates: end: 2015
  7. PANTOPRAZOLE SODIUM. [Concomitant]
     Active Substance: PANTOPRAZOLE SODIUM
     Dosage: 40 MG, UNK
     Route: 048
  8. DIOVAN [Concomitant]
     Active Substance: VALSARTAN
     Dosage: UNK
     Dates: end: 201507
  9. ZYDELIG [Suspect]
     Active Substance: IDELALISIB
     Dosage: 100 MG, BID
     Route: 048
     Dates: start: 20150113, end: 20150316
  10. ZYDELIG [Suspect]
     Active Substance: IDELALISIB
     Dosage: 150 MG, BID
     Route: 048
     Dates: start: 20141020, end: 201412
  11. ALLOPURINOL. [Concomitant]
     Active Substance: ALLOPURINOL
     Dosage: 150 MG, UNK
     Route: 048
  12. ALDACTONE [Concomitant]
     Active Substance: SPIRONOLACTONE
     Dosage: 50 MG, QD
     Route: 048
  13. TOREM                              /01036501/ [Concomitant]
     Active Substance: TORSEMIDE
     Dosage: DOSE INCREASED
     Dates: start: 201507
  14. ULTIBRO [Concomitant]
     Active Substance: GLYCOPYRRONIUM\INDACATEROL

REACTIONS (15)
  - Chronic obstructive pulmonary disease [Unknown]
  - Dehydration [Recovering/Resolving]
  - Renal failure [Recovering/Resolving]
  - Campylobacter gastroenteritis [Unknown]
  - Tetany [Recovered/Resolved]
  - Cough [Unknown]
  - Oedema peripheral [Recovered/Resolved]
  - Dyspnoea [Unknown]
  - Electrolyte imbalance [Recovering/Resolving]
  - Colitis [Recovered/Resolved]
  - Protein deficiency [Unknown]
  - Diarrhoea [Recovered/Resolved]
  - Pneumonia [Unknown]
  - Bronchitis [Unknown]
  - Dysuria [Unknown]

NARRATIVE: CASE EVENT DATE: 201412
